FAERS Safety Report 9936471 (Version 1)
Quarter: 2014Q1

REPORT INFORMATION
  Report Type: Spontaneous
  Country: US (occurrence: US)
  Receive Date: 20140228
  Receipt Date: 20140228
  Transmission Date: 20141002
  Serious: No
  Sender: FDA-Public Use
  Company Number: US-AMGEN-USASP2014004927

PATIENT
  Age: 44 Year
  Sex: Female

DRUGS (3)
  1. ENBREL [Suspect]
     Indication: RHEUMATOID ARTHRITIS
     Dosage: 50 MG, Q2WK
     Route: 065
     Dates: start: 20131011
  2. ARAVA [Concomitant]
     Dosage: ONE TAB, QD
     Dates: start: 20130901
  3. PLAQUENIL                          /00072602/ [Concomitant]
     Dosage: ONE TAB, QD

REACTIONS (2)
  - Rash pruritic [Recovered/Resolved]
  - Rash pustular [Recovered/Resolved]
